FAERS Safety Report 11453836 (Version 3)
Quarter: 2015Q3

REPORT INFORMATION
  Report Type: Spontaneous
  Country: US (occurrence: None)
  Receive Date: 20150903
  Receipt Date: 20150929
  Transmission Date: 20151125
  Serious: No
  Sender: FDA-Public Use
  Company Number: US-MDT-ADR-2015-01689

PATIENT
  Age: 49 Year
  Sex: Male
  Weight: 92 kg

DRUGS (2)
  1. CELEXA [Suspect]
     Active Substance: CITALOPRAM HYDROBROMIDE
     Dosage: ORAL, 40 MG TABLET
  2. BACLOFEN INTRATHECAL 2000 MCG/DAY [Suspect]
     Active Substance: BACLOFEN
     Indication: MUSCLE SPASTICITY
     Dosage: 220 MCG/DAY

REACTIONS (5)
  - Irritability [None]
  - Muscle spasticity [None]
  - Muscle spasms [None]
  - Agitation [None]
  - Paraesthesia [None]
